FAERS Safety Report 6185807-5 (Version None)
Quarter: 2009Q2

REPORT INFORMATION
  Report Type: 
  Country: None (occurrence: None)
  Receive Date: 20090511
  Receipt Date: 20090501
  Transmission Date: 20091009
  Serious: Yes (Hospitalization)
  Sender: FDA-Public Use
  Company Number: A0731241A

PATIENT
  Age: 55 Year
  Sex: Female
  Weight: 100 kg

DRUGS (4)
  1. AVANDIA [Suspect]
     Route: 048
     Dates: start: 20030702, end: 20040401
  2. TOPROL-XL [Concomitant]
  3. LASIX [Concomitant]
     Dates: start: 19980101
  4. NITROGLYCERIN [Concomitant]
     Dates: start: 19980101

REACTIONS (3)
  - CARDIAC FAILURE CONGESTIVE [None]
  - INJURY [None]
  - PAIN [None]
